FAERS Safety Report 9333201 (Version 2)
Quarter: 2014Q1

REPORT INFORMATION
  Report Type: Spontaneous
  Country: GB (occurrence: None)
  Receive Date: 20130604
  Receipt Date: 20140212
  Transmission Date: 20141002
  Serious: Yes (Death)
  Sender: FDA-Public Use
  Company Number: PI-09456

PATIENT
  Age: 81 Year
  Sex: Male
  Weight: 70 kg

DRUGS (9)
  1. CHLORAPREP (2%CHG/70946IPA) SEPP [Suspect]
     Indication: ANTI-INFECTIVE THERAPY
     Route: 061
     Dates: start: 20130426
  2. HOME OXYGEN-5-8L [Concomitant]
  3. TERBUTALINE [Concomitant]
  4. BUDESONIDE [Concomitant]
  5. TIOTROPIUM BROMIDE [Concomitant]
  6. NICORANDIL [Concomitant]
  7. MONUMIL [Concomitant]
  8. OMEPRAZOLE [Concomitant]
  9. SIMVASTATIN [Concomitant]

REACTIONS (2)
  - Anaphylactic reaction [None]
  - Dyspnoea [None]
